FAERS Safety Report 4334129-3 (Version None)
Quarter: 2004Q2

REPORT INFORMATION
  Report Type: 
  Country: None (occurrence: None)
  Receive Date: 20040402
  Receipt Date: 20040319
  Transmission Date: 20050107
  Serious: Yes (Other)
  Sender: FDA-Public Use
  Company Number: 2004205401FR

PATIENT
  Age: 68 Year
  Sex: Female

DRUGS (3)
  1. MINOXIDIL [Suspect]
     Dosage: 1 ML, BID, TOPICAL
     Route: 061
     Dates: start: 20040208, end: 20040309
  2. SPIRONOLACTONE [Concomitant]
  3. TRACE ELEMENTS [Concomitant]

REACTIONS (3)
  - BALANCE DISORDER [None]
  - BLOOD PRESSURE DECREASED [None]
  - VERTIGO [None]
